FAERS Safety Report 7685171-6 (Version None)
Quarter: 2011Q3

REPORT INFORMATION
  Report Type: 
  Country: None (occurrence: None)
  Receive Date: 20110816
  Receipt Date: 20110812
  Transmission Date: 20111222
  Serious: Yes (Other)
  Sender: FDA-Public Use
  Company Number: US-PFIZER INC-2008021040

PATIENT
  Sex: Female
  Weight: 54 kg

DRUGS (5)
  1. DILANTIN [Suspect]
     Indication: CONVULSION
     Dosage: 100 MG, 2X/DAY
     Route: 048
     Dates: start: 19990101, end: 19990101
  2. PRIMIDONE [Concomitant]
     Indication: EPILEPSY
     Dosage: 250 MG, 2X/DAY
     Dates: end: 20080110
  3. DILANTIN [Suspect]
     Dosage: 100 MG, 3X/DAY
     Route: 048
     Dates: start: 19990101
  4. DILANTIN [Suspect]
     Indication: EPILEPSY
     Dosage: 100 MG, 3X/DAY
     Route: 048
     Dates: start: 19760101, end: 19990101
  5. PRIMIDONE [Concomitant]
     Indication: CONVULSION
     Dosage: 250 MG, 3X/DAY
     Dates: start: 20080111, end: 20080101

REACTIONS (8)
  - ANTICONVULSANT DRUG LEVEL DECREASED [None]
  - FALL [None]
  - WRIST FRACTURE [None]
  - AURA [None]
  - SOMNOLENCE [None]
  - INTENTIONAL DRUG MISUSE [None]
  - IMPAIRED DRIVING ABILITY [None]
  - CONVULSION [None]
